FAERS Safety Report 9603046 (Version 1)
Quarter: 2013Q4

REPORT INFORMATION
  Report Type: Spontaneous
  Country: GB (occurrence: GB)
  Receive Date: 20131007
  Receipt Date: 20131007
  Transmission Date: 20140711
  Serious: Yes (Other)
  Sender: FDA-Public Use
  Company Number: US-ASTRAZENECA-2013SE73864

PATIENT
  Sex: 0

DRUGS (7)
  1. CANDESARTAN [Suspect]
     Indication: ATRIAL FIBRILLATION
     Route: 048
     Dates: start: 2008, end: 201203
  2. CANDESARTAN [Suspect]
     Indication: ATRIAL FIBRILLATION
     Route: 048
     Dates: start: 201203, end: 20130814
  3. BISOPROLOL [Concomitant]
  4. PLAVIX [Concomitant]
     Dosage: UNK
     Dates: start: 2005, end: 2007
  5. PLAVIX [Concomitant]
     Dosage: UNK
     Dates: start: 201207
  6. TAMSULOSIN [Concomitant]
  7. WARFARIN [Concomitant]

REACTIONS (2)
  - Atrial flutter [Unknown]
  - Off label use [Unknown]
